FAERS Safety Report 6882318-6 (Version None)
Quarter: 2010Q3

REPORT INFORMATION
  Report Type: 
  Country: None (occurrence: None)
  Receive Date: 20100729
  Receipt Date: 20090923
  Transmission Date: 20110219
  Serious: No
  Sender: FDA-Public Use
  Company Number: US-MYLANLABS-2009S1016790

PATIENT
  Age: 40 Year
  Sex: Female
  Weight: 104.33 kg

DRUGS (1)
  1. LEVOTHYROXINE SODIUM [Suspect]
     Indication: HYPOTHYROIDISM
     Route: 048
     Dates: start: 20090824

REACTIONS (5)
  - FATIGUE [None]
  - MOOD ALTERED [None]
  - MUSCULOSKELETAL STIFFNESS [None]
  - REACTION TO DRUG EXCIPIENTS [None]
  - THROAT IRRITATION [None]
